FAERS Safety Report 20604806 (Version 2)
Quarter: 2022Q2

REPORT INFORMATION
  Report Type: Spontaneous
  Country: JP (occurrence: JP)
  Receive Date: 20220317
  Receipt Date: 20220404
  Transmission Date: 20220721
  Serious: Yes (Other)
  Sender: FDA-Public Use
  Company Number: JP-KYOWAKIRIN-2022AKK003548

PATIENT

DRUGS (1)
  1. ROMIPLOSTIM [Suspect]
     Active Substance: ROMIPLOSTIM
     Indication: Aplastic anaemia
     Dosage: UNK
     Route: 058
     Dates: start: 201911

REACTIONS (2)
  - Chronic myeloid leukaemia [Unknown]
  - Basophil count increased [Unknown]

NARRATIVE: CASE EVENT DATE: 20220301
